FAERS Safety Report 4630064-1 (Version None)
Quarter: 2005Q2

REPORT INFORMATION
  Report Type: 
  Country: None (occurrence: None)
  Receive Date: 20050408
  Receipt Date: 20050328
  Transmission Date: 20051028
  Serious: Yes (Hospitalization)
  Sender: FDA-Public Use
  Company Number: US-ABBOTT-05P-163-0295500-00

PATIENT
  Sex: Male
  Weight: 74.91 kg

DRUGS (5)
  1. DEPAKOTE [Suspect]
     Indication: EPILEPSY
     Route: 048
     Dates: start: 19920101, end: 20050301
  2. DEPAKOTE [Suspect]
     Route: 048
     Dates: start: 20050302
  3. PHENYTOIN SODIUM [Concomitant]
     Indication: CONVULSION
     Dosage: ODD DAYS
  4. PHENYTOIN SODIUM [Concomitant]
     Route: 048
  5. ACETYL SALICYLIC ACID USP BAT [Concomitant]
     Indication: DRUG USE FOR UNKNOWN INDICATION
     Route: 048

REACTIONS (7)
  - ABASIA [None]
  - CHEST PAIN [None]
  - DRUG LEVEL DECREASED [None]
  - FATIGUE [None]
  - HEADACHE [None]
  - ROAD TRAFFIC ACCIDENT [None]
  - SKIN LACERATION [None]
